FAERS Safety Report 5635276-6 (Version None)
Quarter: 2008Q1

REPORT INFORMATION
  Report Type: 
  Country: None (occurrence: None)
  Receive Date: 20080222
  Receipt Date: 20080213
  Transmission Date: 20080703
  Serious: Yes (Death, Other)
  Sender: FDA-Public Use
  Company Number: US-PFIZER INC-2007065467

PATIENT
  Sex: Male
  Weight: 164 kg

DRUGS (7)
  1. BEXTRA [Suspect]
     Indication: OSTEOARTHRITIS
     Route: 048
  2. CELEBREX [Suspect]
     Route: 048
  3. VIOXX [Suspect]
     Route: 048
  4. IBUPROFEN [Concomitant]
  5. TYLENOL (CAPLET) [Concomitant]
  6. ULTRAM [Concomitant]
  7. ASPIRIN [Concomitant]

REACTIONS (4)
  - ANXIETY [None]
  - DEPRESSION [None]
  - INSOMNIA [None]
  - MYOCARDIAL INFARCTION [None]
